FAERS Safety Report 23432041 (Version 2)
Quarter: 2024Q1

REPORT INFORMATION
  Report Type: Spontaneous
  Country: BR (occurrence: BR)
  Receive Date: 20240123
  Receipt Date: 20240201
  Transmission Date: 20240409
  Serious: No
  Sender: FDA-Public Use
  Company Number: BR-ULTRAGENYX PHARMACEUTICAL INC.-BR-UGX-24-00086

PATIENT
  Age: 6 Year

DRUGS (3)
  1. MEPSEVII [Suspect]
     Active Substance: VESTRONIDASE ALFA-VJBK
     Indication: Product used for unknown indication
     Dosage: UNK
     Route: 042
  2. MEPSEVII [Suspect]
     Active Substance: VESTRONIDASE ALFA-VJBK
     Dosage: UNK
     Route: 042
     Dates: start: 20231222
  3. MEPSEVII [Suspect]
     Active Substance: VESTRONIDASE ALFA-VJBK
     Dosage: UNK
     Route: 042
     Dates: start: 20240105

REACTIONS (4)
  - Cough [Recovered/Resolved]
  - Infusion site papule [Recovered/Resolved]
  - Skin lesion [Recovered/Resolved]
  - Pruritus [Recovered/Resolved]

NARRATIVE: CASE EVENT DATE: 20240105
